FAERS Safety Report 23292631 (Version 2)
Quarter: 2025Q4

REPORT INFORMATION
  Report Type: Spontaneous
  Country: US (occurrence: US)
  Receive Date: 20231213
  Receipt Date: 20251118
  Transmission Date: 20260118
  Serious: Yes (Other)
  Sender: SANOFI AVENTIS
  Company Number: US-SA-SAC20231208000149

PATIENT
  Age: 53 Year
  Sex: Female
  Weight: 57.15 kg

DRUGS (25)
  1. DUPIXENT [Suspect]
     Active Substance: DUPILUMAB
     Indication: Asthma
     Dosage: 300 MG, QOW
     Route: 058
     Dates: start: 202109
  2. FASENRA [Suspect]
     Active Substance: BENRALIZUMAB
     Dosage: UNK
  3. ASPIRIN [Concomitant]
     Active Substance: ASPIRIN
  4. CALCIUM\CHOLECALCIFEROL [Concomitant]
     Active Substance: CALCIUM\CHOLECALCIFEROL
  5. CHLORPHENIRAMINE MALEATE [Concomitant]
     Active Substance: CHLORPHENIRAMINE MALEATE
  6. MONTELUKAST SODIUM [Concomitant]
     Active Substance: MONTELUKAST SODIUM
  7. ROSUVASTATIN CALCIUM [Concomitant]
     Active Substance: ROSUVASTATIN CALCIUM
  8. SPIRIVA RESPIMAT [Concomitant]
     Active Substance: TIOTROPIUM BROMIDE
     Dosage: UNK
  9. ADVAIR HFA [Concomitant]
     Active Substance: FLUTICASONE PROPIONATE\SALMETEROL XINAFOATE
  10. HYDROCHLOROTHIAZIDE [Concomitant]
     Active Substance: HYDROCHLOROTHIAZIDE
  11. OZEMPIC [Concomitant]
     Active Substance: SEMAGLUTIDE
  12. SYNTHROID [Concomitant]
     Active Substance: LEVOTHYROXINE SODIUM
  13. SYNTHROID [Concomitant]
     Active Substance: LEVOTHYROXINE SODIUM
  14. LIOTHYRONINE SODIUM [Concomitant]
     Active Substance: LIOTHYRONINE SODIUM
  15. VITAMIN B2 [Concomitant]
     Active Substance: RIBOFLAVIN
  16. HYDROXYZINE HYDROCHLORIDE [Concomitant]
     Active Substance: HYDROXYZINE HYDROCHLORIDE
  17. FLUARIX QUADRIVALENT [Concomitant]
     Active Substance: INFLUENZA VIRUS VACCINE
     Indication: Immunisation
  18. VITAMIN D3 [Concomitant]
     Active Substance: CHOLECALCIFEROL
  19. ALBUTEROL SULFATE [Concomitant]
     Active Substance: ALBUTEROL SULFATE
     Dosage: UNK
  20. MAGNESIUM [Concomitant]
     Active Substance: MAGNESIUM
  21. PFIZER-BIONTECH COVID-19 VACCINE [Concomitant]
     Active Substance: TOZINAMERAN
  22. TRELEGY ELLIPTA [Concomitant]
     Active Substance: FLUTICASONE FUROATE\UMECLIDINIUM BROMIDE\VILANTEROL TRIFENATATE
     Dosage: UNK(200-62.5 BLST W/DEV)
  23. AIRSUPRA [BUDESONIDE;SALBUTAMOL] [Concomitant]
     Dosage: UNK(HFA AER AD)
  24. ALBUTEROL SULFATE [Concomitant]
     Active Substance: ALBUTEROL SULFATE
     Dosage: UNK(2.5MG/3ML VIAL-NEB)
  25. VITAMINS NOS [Concomitant]
     Active Substance: VITAMINS
     Dosage: UNK

REACTIONS (14)
  - Hip arthroplasty [Unknown]
  - Vitiligo [Unknown]
  - Thyroid disorder [Unknown]
  - Skin haemorrhage [Unknown]
  - Memory impairment [Unknown]
  - Rash erythematous [Unknown]
  - Psoriasis [Unknown]
  - Vomiting [Unknown]
  - Sinusitis [Not Recovered/Not Resolved]
  - Pruritus [Recovering/Resolving]
  - Skin exfoliation [Unknown]
  - Injection site pain [Unknown]
  - Injection site bruising [Unknown]
  - Asthma [Unknown]

NARRATIVE: CASE EVENT DATE: 20231101
